FAERS Safety Report 13443964 (Version 1)
Quarter: 2017Q2

REPORT INFORMATION
  Report Type: Spontaneous
  Country: US (occurrence: US)
  Receive Date: 20170414
  Receipt Date: 20170414
  Transmission Date: 20170830
  Serious: Yes (Other)
  Sender: FDA-Public Use
  Company Number: US-ENDO PHARMACEUTICALS INC-2017-001718

PATIENT

DRUGS (1)
  1. KETALAR [Suspect]
     Active Substance: KETAMINE HYDROCHLORIDE
     Indication: INDUCTION OF ANAESTHESIA
     Dosage: 1.5 MG/KG, SINGLE
     Route: 042

REACTIONS (2)
  - Pulmonary hypertension [Recovered/Resolved]
  - Pulmonary oedema [Recovered/Resolved]
